FAERS Safety Report 6175725-0 (Version None)
Quarter: 2009Q2

REPORT INFORMATION
  Report Type: 
  Country: None (occurrence: None)
  Receive Date: 20090501
  Receipt Date: 20090420
  Transmission Date: 20091009
  Serious: Yes (Other)
  Sender: FDA-Public Use
  Company Number: PE-PFIZER INC-2009201594

PATIENT

DRUGS (2)
  1. EPAMIN [Suspect]
     Indication: CONVULSION
     Dosage: 100 MG, UNK
  2. PHENOBARBITAL [Suspect]
     Indication: CONVULSION
     Dosage: UNK

REACTIONS (2)
  - ANTICONVULSANT DRUG LEVEL DECREASED [None]
  - CONVULSION [None]
